FAERS Safety Report 9402516 (Version 4)
Quarter: 2013Q4

REPORT INFORMATION
  Report Type: Report from Study
  Country: FR (occurrence: FR)
  Receive Date: 20130716
  Receipt Date: 20131120
  Transmission Date: 20140711
  Serious: Yes (Other)
  Sender: FDA-Public Use
  Company Number: FR-CELGENEUS-056-21880-13070621

PATIENT
  Age: 80 Year
  Sex: Male
  Weight: 97 kg

DRUGS (12)
  1. REVLIMID [Suspect]
     Indication: PLASMA CELL MYELOMA
     Dosage: 15 MILLIGRAM
     Route: 048
     Dates: start: 20120208, end: 20120705
  2. DEXAMETHASONE [Suspect]
     Indication: PLASMA CELL MYELOMA
     Dosage: 80 MILLIGRAM
     Route: 048
     Dates: start: 20120208, end: 20120705
  3. TAHOR [Concomitant]
     Indication: HYPERCHOLESTEROLAEMIA
     Dosage: 20
     Route: 048
  4. XATRAL [Concomitant]
     Indication: BENIGN PROSTATIC HYPERPLASIA
     Dosage: 110 MILLIGRAM
     Route: 048
  5. KEPRA [Concomitant]
     Indication: EPILEPSY
     Dosage: 500
     Route: 048
  6. APROVEL [Concomitant]
     Indication: HYPERTENSION
     Dosage: 150
     Route: 048
  7. RYTHMOL [Concomitant]
     Indication: ARRHYTHMIA SUPRAVENTRICULAR
     Dosage: 150
     Route: 048
  8. TRANSIPEG [Concomitant]
     Indication: CONSTIPATION
     Dosage: 5.9 GRAM
     Route: 048
  9. KARDEGIC [Concomitant]
     Indication: THROMBOSIS PROPHYLAXIS
     Dosage: 1 DOSAGE FORMS
     Route: 048
  10. BURINEX [Concomitant]
     Indication: RENAL FAILURE
     Dosage: 2.5 MILLIGRAM
     Route: 048
  11. INSULIN LANTUS [Concomitant]
     Indication: DIABETES MELLITUS
     Dosage: 32 IU (INTERNATIONAL UNIT)
     Route: 065
  12. INIPOMP [Concomitant]
     Indication: PROPHYLAXIS
     Dosage: 20 MILLIGRAM
     Route: 048

REACTIONS (1)
  - Lung adenocarcinoma [Not Recovered/Not Resolved]
